FAERS Safety Report 7467019-8 (Version None)
Quarter: 2011Q2

REPORT INFORMATION
  Report Type: 
  Country: None (occurrence: None)
  Receive Date: 20110509
  Receipt Date: 20101028
  Transmission Date: 20111010
  Serious: Yes (Other)
  Sender: FDA-Public Use
  Company Number: US-ALEXION-A201001131

PATIENT
  Sex: Male

DRUGS (6)
  1. ALOXI [Concomitant]
     Indication: ANTIEMETIC SUPPORTIVE CARE
     Dosage: 0.25 MG 3 X WEEKLY WITH VIDAZA
  2. SOLIRIS [Suspect]
     Dosage: 900 MG, Q2W
     Route: 042
     Dates: start: 20100217
  3. RESTORIL                           /00393701/ [Concomitant]
     Dosage: UNK
     Route: 048
  4. FOLIC ACID [Concomitant]
     Dosage: UNK
     Route: 048
  5. VIDAZA [Suspect]
     Indication: MYELODYSPLASTIC SYNDROME
     Dosage: 150 MG, 5 DAYS/MONTH
     Dates: start: 20100913
  6. SOLIRIS [Suspect]
     Indication: PAROXYSMAL NOCTURNAL HAEMOGLOBINURIA
     Dosage: 600 MG, QW
     Route: 042
     Dates: start: 20100113, end: 20100203

REACTIONS (3)
  - PLATELET COUNT DECREASED [None]
  - WHITE BLOOD CELL COUNT DECREASED [None]
  - FATIGUE [None]
